FAERS Safety Report 16366328 (Version 1)
Quarter: 2019Q3

REPORT INFORMATION
  Report Type: Spontaneous
  Country: US (occurrence: US)
  Receive Date: 20190528
  Receipt Date: 20190528
  Transmission Date: 20191004
  Serious: Yes (Hospitalization)
  Sender: FDA-Public Use
  Company Number: None

PATIENT
  Age: 56 Year
  Sex: Female

DRUGS (7)
  1. CLONIDINE 0.3 MG [Concomitant]
     Active Substance: CLONIDINE
  2. OXCARBAZEPINE 300MG [Concomitant]
     Active Substance: OXCARBAZEPINE
  3. OLANZAPINE 20MG [Concomitant]
     Active Substance: OLANZAPINE
  4. DEXILANT [Concomitant]
     Active Substance: DEXLANSOPRAZOLE
  5. FUROSEMIDE 20 MG [Concomitant]
     Active Substance: FUROSEMIDE
  6. GABAPENTIN 100 [Concomitant]
  7. SAMSCA [Suspect]
     Active Substance: TOLVAPTAN
     Indication: HYPONATRAEMIA
     Dosage: ?          OTHER FREQUENCY:EVERY 3 DAYS;?
     Route: 048

REACTIONS (2)
  - Bronchitis [None]
  - Cardiac failure [None]

NARRATIVE: CASE EVENT DATE: 20190528
